FAERS Safety Report 9334591 (Version 1)
Quarter: 2013Q2

REPORT INFORMATION
  Report Type: Report from Study
  Country: CA (occurrence: CA)
  Receive Date: 20130606
  Receipt Date: 20130606
  Transmission Date: 20140414
  Serious: Yes (Other)
  Sender: FDA-Public Use
  Company Number: CA-JNJFOC-20130523043

PATIENT
  Age: 52 Year
  Sex: Female
  Weight: 65 kg

DRUGS (17)
  1. REMICADE [Suspect]
     Indication: CROHN^S DISEASE
     Route: 042
     Dates: start: 2008
  2. ELAVIL [Concomitant]
     Route: 065
  3. PANTOPRAZOLE [Concomitant]
     Route: 065
  4. CHOLESTYRAMINE [Concomitant]
     Route: 065
  5. ZOLPIDEM [Concomitant]
     Route: 065
  6. CYCLOBENZAPRINE [Concomitant]
     Route: 065
  7. CALCIUM [Concomitant]
     Route: 065
  8. MAGNESIUM [Concomitant]
     Route: 065
  9. VITAMIN B6 [Concomitant]
     Route: 065
  10. VITAMIN D3 [Concomitant]
     Route: 065
  11. MOTILIUM [Concomitant]
     Route: 065
  12. ASA [Concomitant]
     Route: 065
  13. DIPHENHYDRAMINE [Concomitant]
     Indication: PREMEDICATION
     Route: 065
  14. HYDROCORTISONE [Concomitant]
     Indication: PREMEDICATION
     Route: 065
  15. TYLENOL [Concomitant]
     Indication: PREMEDICATION
     Route: 065
  16. REACTINE [Concomitant]
     Indication: PREMEDICATION
     Route: 065
  17. HCTZ [Concomitant]
     Route: 065

REACTIONS (2)
  - Hypertension [Unknown]
  - Chest pain [Unknown]
